FAERS Safety Report 25383803 (Version 1)
Quarter: 2025Q2

REPORT INFORMATION
  Report Type: Spontaneous
  Country: US (occurrence: US)
  Receive Date: 20250602
  Receipt Date: 20250602
  Transmission Date: 20250716
  Serious: No
  Sender: AMGEN
  Company Number: US-AMGEN-USASP2025107314

PATIENT
  Sex: Male
  Weight: 68.934 kg

DRUGS (2)
  1. XGEVA [Suspect]
     Active Substance: DENOSUMAB
     Indication: Prostate cancer
     Route: 065
  2. REDITREX [Concomitant]
     Active Substance: METHOTREXATE

REACTIONS (1)
  - Refusal of treatment by patient [Unknown]
